FAERS Safety Report 24075316 (Version 1)
Quarter: 2024Q3

REPORT INFORMATION
  Report Type: Spontaneous
  Country: US (occurrence: US)
  Receive Date: 20240710
  Receipt Date: 20240710
  Transmission Date: 20241017
  Serious: Yes (Hospitalization)
  Sender: DOMPE FARMACEUTICI
  Company Number: US-FARMAPROD-202407-2426

PATIENT
  Sex: Female

DRUGS (11)
  1. OXERVATE [Suspect]
     Active Substance: CENEGERMIN-BKBJ
     Indication: Neurotrophic keratopathy
     Route: 047
     Dates: start: 20240530
  2. REFRESH CLASSIC [Concomitant]
     Active Substance: POLYVINYL ALCOHOL\POVIDONE
  3. VITAMIN B12 [Concomitant]
     Active Substance: CYANOCOBALAMIN
  4. MAGNESIUM [Concomitant]
     Active Substance: MAGNESIUM
  5. VORICONAZOLE [Concomitant]
     Active Substance: VORICONAZOLE
  6. URSODIOL [Concomitant]
     Active Substance: URSODIOL
  7. TACROLIMUS [Concomitant]
     Active Substance: TACROLIMUS
  8. PREDNISOLONE [Concomitant]
     Active Substance: PREDNISOLONE
  9. PRED FORTE [Concomitant]
     Active Substance: PREDNISOLONE ACETATE
  10. PREVYMIS [Concomitant]
     Active Substance: LETERMOVIR
  11. JAKAFI [Concomitant]
     Active Substance: RUXOLITINIB

REACTIONS (3)
  - Hospitalisation [Unknown]
  - Product administration error [Unknown]
  - Underdose [Unknown]
